FAERS Safety Report 8002787-8 (Version None)
Quarter: 2011Q4

REPORT INFORMATION
  Report Type: 
  Country: None (occurrence: None)
  Receive Date: 20111222
  Receipt Date: 20111214
  Transmission Date: 20120403
  Serious: Yes (Hospitalization)
  Sender: FDA-Public Use
  Company Number: US-PFIZER INC-2011081651

PATIENT
  Sex: Female
  Weight: 74.195 kg

DRUGS (16)
  1. NEXIUM [Concomitant]
     Dosage: 40 MG, 1X/DAY
     Route: 048
     Dates: start: 20110329
  2. TRAZODONE [Concomitant]
     Dosage: UNK
     Route: 048
     Dates: start: 20020101
  3. XANAX [Concomitant]
     Dosage: UNK
     Route: 048
     Dates: start: 20080108
  4. SYSTANE [Concomitant]
     Dosage: UNK
     Route: 048
     Dates: start: 20080101
  5. ASTELIN [Concomitant]
     Dosage: UNK
     Route: 048
     Dates: start: 20070221
  6. ACETYLSALICYLIC ACID [Concomitant]
     Dosage: UNK
     Route: 048
     Dates: start: 19950101
  7. CELECOXIB [Suspect]
     Indication: OSTEOARTHRITIS
     Dosage: 200 MG, 2X/DAY
     Route: 048
     Dates: start: 20100930, end: 20110329
  8. LIPITOR [Concomitant]
     Dosage: UNK
     Route: 048
     Dates: start: 20020101
  9. VICODIN [Concomitant]
     Dosage: UNK
     Route: 048
     Dates: start: 20081104
  10. MULTI-VITAMINS [Concomitant]
     Dosage: UNK
     Route: 048
     Dates: start: 20000101
  11. NEXIUM [Concomitant]
     Indication: GASTROOESOPHAGEAL REFLUX DISEASE
     Dosage: 20 MG, 1X/DAY
     Route: 048
     Dates: start: 20100930
  12. CYMBALTA [Concomitant]
     Dosage: UNK
     Route: 048
     Dates: start: 20070330
  13. ADVAIR DISKUS 100/50 [Concomitant]
     Dosage: UNK
     Route: 055
     Dates: start: 20071025
  14. SYNTHROID [Concomitant]
     Dosage: UNK
     Route: 048
     Dates: start: 20000101
  15. NEURONTIN [Concomitant]
     Dosage: UNK
     Route: 048
     Dates: start: 20090617
  16. CALCIUM CARBONATE [Concomitant]
     Dosage: UNK
     Route: 048
     Dates: start: 20060803

REACTIONS (2)
  - CARDIAC VALVE DISEASE [None]
  - COSTOCHONDRITIS [None]
